FAERS Safety Report 8382754 (Version 3)
Quarter: 2015Q1

REPORT INFORMATION
  Report Type: Report from Study
  Country: US (occurrence: US)
  Receive Date: 20120201
  Receipt Date: 20150225
  Transmission Date: 20150721
  Serious: Yes (Death)
  Sender: FDA-Public Use
  Company Number: US-ROCHE-1035095

PATIENT
  Sex: Female
  Weight: 78.09 kg

DRUGS (7)
  1. ONDANSETRON HCL [Concomitant]
     Active Substance: ONDANSETRON HYDROCHLORIDE
     Route: 042
     Dates: start: 20080325, end: 20080325
  2. ZOMETA [Concomitant]
     Active Substance: ZOLEDRONIC ACID
     Dosage: DAILY SHORT OVER 20MINS FOR 1 DAY IN NS 100 ML
     Route: 042
     Dates: start: 20080325, end: 20080325
  3. GEMCITABINE HCL [Concomitant]
     Active Substance: GEMCITABINE HYDROCHLORIDE
     Dosage: DAILY SHORT OVER 30 MINS FOR 1 DAY IN NS 250 ML
     Route: 042
     Dates: start: 20080325, end: 20080325
  4. VINORELBINE TARTRATE. [Concomitant]
     Active Substance: VINORELBINE TARTRATE
     Dosage: DAILY SHORT FOR 15 MINS FOR 1 DAY IN NS 50 ML
     Route: 042
     Dates: start: 20080325, end: 20080325
  5. OXALIPLATIN. [Concomitant]
     Active Substance: OXALIPLATIN
  6. AVASTIN [Suspect]
     Active Substance: BEVACIZUMAB
     Indication: NEOPLASM MALIGNANT
     Dosage: DAILY SHORT FOR 1 DAY IN NS 100 ML
     Route: 042
     Dates: start: 20080325, end: 20080325
  7. DEXAMETHASONE SODIUM PHOSPHATE. [Concomitant]
     Active Substance: DEXAMETHASONE SODIUM PHOSPHATE
     Route: 042
     Dates: start: 20080325, end: 20080325

REACTIONS (2)
  - Off label use [Unknown]
  - Disease progression [Fatal]
